FAERS Safety Report 12720086 (Version 1)
Quarter: 2016Q3

REPORT INFORMATION
  Report Type: Other
  Country: AU (occurrence: AU)
  Receive Date: 20160907
  Receipt Date: 20160907
  Transmission Date: 20161109
  Serious: Yes (Other)
  Sender: FDA-Public Use
  Company Number: AU-DEXPHARM-20161917

PATIENT
  Age: 33 Year
  Sex: Male

DRUGS (9)
  1. THIAMAZOLE [Suspect]
     Active Substance: METHIMAZOLE
  2. SPIRONOLACTONE. [Suspect]
     Active Substance: SPIRONOLACTONE
  3. WARFARIN [Suspect]
     Active Substance: WARFARIN
  4. LANSOPRAZOLE. [Suspect]
     Active Substance: LANSOPRAZOLE
  5. FUROSEMIDE. [Suspect]
     Active Substance: FUROSEMIDE
  6. PROPYLTHIOURACIL. [Suspect]
     Active Substance: PROPYLTHIOURACIL
  7. CANDESARTAN [Suspect]
     Active Substance: CANDESARTAN
  8. BISOPROLOL [Suspect]
     Active Substance: BISOPROLOL
  9. ALPRAZOLAM. [Suspect]
     Active Substance: ALPRAZOLAM

REACTIONS (1)
  - Rhabdomyolysis [Recovering/Resolving]
